FAERS Safety Report 8766944 (Version 1)
Quarter: 2012Q4

REPORT INFORMATION
  Report Type: 
  Country: US (occurrence: US)
  Receive Date: 20120904
  Receipt Date: 20120904
  Transmission Date: 20130627
  Serious: Yes (Hospitalization)
  Sender: FDA-Public Use
  Company Number: US-B.I. PHARMACEUTICALS,INC./RIDGEFIELD-2012-BP-20924BP

PATIENT
  Age: 57 Year
  Sex: Female

DRUGS (6)
  1. PRADAXA [Suspect]
     Indication: ATRIAL FIBRILLATION
     Dosage: 300 mg
     Route: 048
     Dates: start: 201205
  2. ASPIRIN [Concomitant]
     Dosage: 81 mg
     Route: 048
  3. DILTIAZEM CD [Concomitant]
     Indication: CARDIAC DISORDER
     Dosage: 180 mg
     Route: 048
  4. LISINOPRIL [Concomitant]
     Indication: HYPERTENSION
     Dosage: 5 mg
     Route: 048
  5. SIMVASTATIN [Concomitant]
     Indication: BLOOD CHOLESTEROL INCREASED
     Dosage: 20 mg
     Route: 048
  6. PANTOPRAZOLE [Concomitant]
     Indication: GASTRIC DISORDER
     Dosage: 80 mg
     Route: 048

REACTIONS (1)
  - Atrial fibrillation [Recovered/Resolved]
